FAERS Safety Report 10039014 (Version 2)
Quarter: 2014Q1

REPORT INFORMATION
  Report Type: Spontaneous
  Country: AU (occurrence: AU)
  Receive Date: 20140326
  Receipt Date: 20140326
  Transmission Date: 20141002
  Serious: Yes (Disabling)
  Sender: FDA-Public Use
  Company Number: AU-SA-2014SA005440

PATIENT
  Age: 63 Year
  Sex: Male

DRUGS (2)
  1. AUBAGIO [Suspect]
     Indication: MULTIPLE SCLEROSIS
     Route: 048
     Dates: start: 201307
  2. TEGRETOL [Concomitant]
     Indication: NEURALGIA

REACTIONS (2)
  - Gait disturbance [Not Recovered/Not Resolved]
  - Skin disorder [Not Recovered/Not Resolved]
